FAERS Safety Report 4734139-8 (Version None)
Quarter: 2005Q3

REPORT INFORMATION
  Report Type: 
  Country: None (occurrence: None)
  Receive Date: 20050721
  Receipt Date: 20050502
  Transmission Date: 20060218
  Serious: No
  Sender: FDA-Public Use
  Company Number: 2005SP000494

PATIENT
  Age: 69 Year
  Sex: Male

DRUGS (3)
  1. LUNESTA [Suspect]
     Dosage: 1 MG; 1X; ORAL; 2 MG; 1X; ORAL; 3 MG; ORAL
     Route: 048
     Dates: start: 20050425, end: 20050425
  2. LUNESTA [Suspect]
     Dosage: 1 MG; 1X; ORAL; 2 MG; 1X; ORAL; 3 MG; ORAL
     Route: 048
     Dates: start: 20050426, end: 20050426
  3. LUNESTA [Suspect]
     Dosage: 1 MG; 1X; ORAL; 2 MG; 1X; ORAL; 3 MG; ORAL
     Route: 048
     Dates: start: 20050427

REACTIONS (2)
  - DRUG INEFFECTIVE [None]
  - INSOMNIA [None]
